FAERS Safety Report 8879836 (Version 1)
Quarter: 2012Q4

REPORT INFORMATION
  Report Type: 
  Country: GB (occurrence: GB)
  Receive Date: 20121101
  Receipt Date: 20121101
  Transmission Date: 20130627
  Serious: Yes (Other)
  Sender: FDA-Public Use
  Company Number: GB-JNJFOC-20121017525

PATIENT

DRUGS (1)
  1. NICOTINE POLACRILEX GUM [Suspect]
     Indication: PRODUCT USED FOR UNKNOWN INDICATION
     Dosage: for 7 years
     Route: 002

REACTIONS (7)
  - Angina pectoris [Unknown]
  - Nicotine dependence [Unknown]
  - Intentional drug misuse [Unknown]
  - Palpitations [Unknown]
  - Flatulence [Unknown]
  - Tooth disorder [Unknown]
  - Gastrointestinal disorder [Unknown]
